FAERS Safety Report 5968348-7 (Version None)
Quarter: 2008Q4

REPORT INFORMATION
  Report Type: 
  Country: None (occurrence: None)
  Receive Date: 20081126
  Receipt Date: 20081118
  Transmission Date: 20090506
  Serious: Yes (Other)
  Sender: FDA-Public Use
  Company Number: US-JNJFOC-20081004868

PATIENT
  Sex: Male

DRUGS (9)
  1. INVEGA [Suspect]
     Indication: SCHIZOPHRENIA
     Dosage: 6-12 MG DAILY
     Route: 048
  2. XANAX [Concomitant]
     Indication: ANXIETY
  3. CYMBALTA [Concomitant]
     Indication: SCHIZOAFFECTIVE DISORDER
  4. CYMBALTA [Concomitant]
     Indication: DEVELOPMENTAL DELAY
  5. DEPAKOTE [Concomitant]
     Indication: DRUG THERAPY
  6. BENZTROPINE MESYLATE [Concomitant]
     Indication: DRUG USE FOR UNKNOWN INDICATION
  7. PRILOSEC [Concomitant]
     Indication: DRUG USE FOR UNKNOWN INDICATION
  8. LEXAPRO [Concomitant]
     Indication: SCHIZOAFFECTIVE DISORDER
  9. LEXAPRO [Concomitant]
     Indication: BIPOLAR I DISORDER

REACTIONS (1)
  - SYNCOPE [None]
